FAERS Safety Report 14286970 (Version 1)
Quarter: 2017Q4

REPORT INFORMATION
  Report Type: Spontaneous
  Country: IL (occurrence: IL)
  Receive Date: 20171214
  Receipt Date: 20171214
  Transmission Date: 20180321
  Serious: Yes (Hospitalization)
  Sender: FDA-Public Use
  Company Number: US-ASTRAZENECA-2017SF19245

PATIENT
  Age: 72 Day
  Sex: Male
  Weight: 4 kg

DRUGS (1)
  1. SYNAGIS [Suspect]
     Active Substance: PALIVIZUMAB
     Indication: ANTIVIRAL PROPHYLAXIS
     Route: 030
     Dates: start: 201711, end: 201711

REACTIONS (4)
  - Oxygen saturation decreased [Unknown]
  - Dehydration [Unknown]
  - Respiratory syncytial virus bronchiolitis [Not Recovered/Not Resolved]
  - Respiratory syncytial virus infection [Unknown]

NARRATIVE: CASE EVENT DATE: 20171108
